FAERS Safety Report 9799647 (Version 1)
Quarter: 2014Q1

REPORT INFORMATION
  Report Type: Spontaneous
  Country: US (occurrence: US)
  Receive Date: 20140106
  Receipt Date: 20140106
  Transmission Date: 20141002
  Serious: No
  Sender: FDA-Public Use
  Company Number: US-GILEAD-2010-0032008

PATIENT
  Age: 54 Year
  Sex: Male

DRUGS (12)
  1. LETAIRIS [Suspect]
     Indication: PULMONARY ARTERIAL HYPERTENSION
     Route: 048
     Dates: start: 20090801, end: 20100530
  2. AMLODIPINE [Concomitant]
  3. ATENOLOL [Concomitant]
  4. LISINOPRIL [Concomitant]
  5. LASIX [Concomitant]
  6. COMBIVENT [Concomitant]
  7. NASAREL [Concomitant]
  8. VICODIN [Concomitant]
  9. ALPRAZOLAM [Concomitant]
  10. EPZICOM [Concomitant]
  11. NORVIR [Concomitant]
  12. REYATAZ [Concomitant]

REACTIONS (1)
  - Local swelling [Recovering/Resolving]
